FAERS Safety Report 9301398 (Version 1)
Quarter: 2013Q2

REPORT INFORMATION
  Report Type: Spontaneous
  Country: US (occurrence: None)
  Receive Date: 20130520
  Receipt Date: 20130520
  Transmission Date: 20140414
  Serious: Yes (Hospitalization)
  Sender: FDA-Public Use
  Company Number: None

PATIENT
  Age: 58 Year
  Sex: Male
  Weight: 81.3 kg

DRUGS (1)
  1. CISPLATIN [Suspect]

REACTIONS (2)
  - Weight decreased [None]
  - Gastrostomy [None]
